FAERS Safety Report 6455247-X (Version None)
Quarter: 2009Q4

REPORT INFORMATION
  Report Type: 
  Country: None (occurrence: None)
  Receive Date: 20091119
  Receipt Date: 20091105
  Transmission Date: 20100525
  Serious: Yes (Other)
  Sender: FDA-Public Use
  Company Number: 8054243

PATIENT

DRUGS (1)
  1. KEPPRA [Suspect]

REACTIONS (2)
  - GENITALIA EXTERNAL AMBIGUOUS [None]
  - MATERNAL DRUGS AFFECTING FOETUS [None]
